FAERS Safety Report 25667834 (Version 2)
Quarter: 2025Q3

REPORT INFORMATION
  Report Type: Report from Study
  Country: US (occurrence: US)
  Receive Date: 20250812
  Receipt Date: 20250822
  Transmission Date: 20251020
  Serious: Yes (Hospitalization, Other)
  Sender: ABBVIE
  Company Number: US-ABBVIE-6408219

PATIENT
  Age: 64 Year
  Sex: Male

DRUGS (1)
  1. SKYRIZI [Suspect]
     Active Substance: RISANKIZUMAB-RZAA
     Indication: Psoriasis
     Route: 058
     Dates: start: 20240924, end: 20250311

REACTIONS (4)
  - Meningitis [Not Recovered/Not Resolved]
  - Immunodeficiency [Unknown]
  - Eye infection [Not Recovered/Not Resolved]
  - Autoimmune disorder [Unknown]

NARRATIVE: CASE EVENT DATE: 20250311
